FAERS Safety Report 13457715 (Version 1)
Quarter: 2017Q2

REPORT INFORMATION
  Report Type: Spontaneous
  Country: US (occurrence: US)
  Receive Date: 20170419
  Receipt Date: 20170419
  Transmission Date: 20170830
  Serious: No
  Sender: FDA-Public Use
  Company Number: US-009507513-1703USA010501

PATIENT
  Age: 70 Year
  Sex: Female

DRUGS (4)
  1. BELSOMRA [Suspect]
     Active Substance: SUVOREXANT
     Indication: INSOMNIA
     Dosage: 20 MG (ONE TABLET), ONCE DAILY
     Route: 048
  2. OMEPRAZOLE. [Concomitant]
     Active Substance: OMEPRAZOLE
     Dosage: UNK
  3. ATIVAN [Concomitant]
     Active Substance: LORAZEPAM
     Dosage: UNK
  4. MELATONIN [Concomitant]
     Active Substance: MELATONIN
     Dosage: UNK

REACTIONS (2)
  - Drug dose omission [Unknown]
  - Insomnia [Not Recovered/Not Resolved]
